FAERS Safety Report 5485690-7 (Version None)
Quarter: 2007Q4

REPORT INFORMATION
  Report Type: 
  Country: None (occurrence: None)
  Receive Date: 20071015
  Receipt Date: 20071010
  Transmission Date: 20080405
  Serious: Yes (Other)
  Sender: FDA-Public Use
  Company Number: DE-BRISTOL-MYERS SQUIBB COMPANY-13765060

PATIENT
  Age: 31 Year
  Sex: Female

DRUGS (2)
  1. SUSTIVA [Suspect]
     Dates: start: 20070212, end: 20070401
  2. TRUVADA [Concomitant]

REACTIONS (3)
  - ABORTION SPONTANEOUS [None]
  - PREGNANCY [None]
  - STRESS [None]
